FAERS Safety Report 9089116 (Version 1)
Quarter: 2013Q1

REPORT INFORMATION
  Report Type: Spontaneous
  Country: CA (occurrence: CA)
  Receive Date: 20130201
  Receipt Date: 20130201
  Transmission Date: 20140127
  Serious: Yes (Hospitalization)
  Sender: FDA-Public Use
  Company Number: CA-ABBOTT-13P-028-1042881-00

PATIENT
  Age: 63 None
  Sex: Female

DRUGS (1)
  1. HUMIRA [Suspect]
     Indication: ANKYLOSING SPONDYLITIS
     Route: 058
     Dates: start: 20121210

REACTIONS (5)
  - Loss of consciousness [Recovered/Resolved]
  - Arthralgia [Recovered/Resolved]
  - Syncope [Recovered/Resolved]
  - Osteoarthritis [Unknown]
  - Arthralgia [Not Recovered/Not Resolved]
